FAERS Safety Report 5741800-5 (Version None)
Quarter: 2008Q2

REPORT INFORMATION
  Report Type: 
  Country: None (occurrence: None)
  Receive Date: 20080515
  Receipt Date: 20080515
  Transmission Date: 20081010
  Serious: Yes (Hospitalization)
  Sender: FDA-Public Use
  Company Number: None

PATIENT
  Age: 53 Year
  Sex: Male

DRUGS (4)
  1. VANCOMYCIN [Suspect]
     Indication: WOUND INFECTION STAPHYLOCOCCAL
     Dosage: 1 GM Q12H IV
     Route: 042
     Dates: start: 20080111, end: 20080204
  2. RIFAMPIN [Concomitant]
  3. LISINOPRIL [Concomitant]
  4. CALTRATE D [Concomitant]

REACTIONS (9)
  - CHILLS [None]
  - ERYTHEMA [None]
  - INFUSION SITE OEDEMA [None]
  - INFUSION SITE PAIN [None]
  - NAUSEA [None]
  - PYREXIA [None]
  - RASH ERYTHEMATOUS [None]
  - SKIN WARM [None]
  - VOMITING [None]
